FAERS Safety Report 8942115 (Version 1)
Quarter: 2012Q4

REPORT INFORMATION
  Report Type: 
  Country: FR (occurrence: FR)
  Receive Date: 20121130
  Receipt Date: 20121130
  Transmission Date: 20130627
  Serious: Yes (Other)
  Sender: FDA-Public Use
  Company Number: FR-GLAXOSMITHKLINE-B0846578A

PATIENT
  Age: 42 Year
  Sex: Male

DRUGS (2)
  1. IMIJECT [Suspect]
     Indication: HEADACHE
     Dosage: 1AMP Per day
     Route: 058
     Dates: start: 20120315, end: 20120325
  2. ALTIM [Suspect]
     Indication: HEADACHE
     Dosage: 3.75MG Alternate days
     Route: 058
     Dates: start: 20120315, end: 20120321

REACTIONS (3)
  - Macular oedema [Recovered/Resolved]
  - Visual acuity reduced [Recovered/Resolved]
  - Macular scar [None]
